FAERS Safety Report 13267092 (Version 1)
Quarter: 2017Q1

REPORT INFORMATION
  Report Type: Spontaneous
  Country: US (occurrence: US)
  Receive Date: 20170224
  Receipt Date: 20170224
  Transmission Date: 20170428
  Serious: No
  Sender: FDA-Public Use
  Company Number: US-TEVA-742589ACC

PATIENT
  Age: 66 Year

DRUGS (3)
  1. SINEMET [Concomitant]
     Active Substance: CARBIDOPA\LEVODOPA
  2. NORTHERA [Suspect]
     Active Substance: DROXIDOPA
     Indication: NERVOUS SYSTEM DISORDER
     Route: 065
  3. AZILECT [Suspect]
     Active Substance: RASAGILINE MESYLATE
     Route: 065

REACTIONS (6)
  - Muscle spasms [Unknown]
  - Dizziness [Unknown]
  - Muscular weakness [Unknown]
  - Clumsiness [Unknown]
  - Somnolence [Unknown]
  - Hypotension [Unknown]

NARRATIVE: CASE EVENT DATE: 20161011
